FAERS Safety Report 8338705-2 (Version None)
Quarter: 2012Q2

REPORT INFORMATION
  Report Type: 
  Country: None (occurrence: None)
  Receive Date: 20120504
  Receipt Date: 20120503
  Transmission Date: 20120825
  Serious: Yes (Other)
  Sender: FDA-Public Use
  Company Number: GXKR2012DE001627

PATIENT
  Age: 33 Year
  Sex: Female

DRUGS (1)
  1. METFORMIN HCL [Suspect]
     Dosage: 1000 MG, UNK
     Route: 048

REACTIONS (3)
  - AUTOIMMUNE HEPATITIS [None]
  - LIVER INJURY [None]
  - FIBROSIS [None]
